FAERS Safety Report 15946911 (Version 1)
Quarter: 2019Q1

REPORT INFORMATION
  Report Type: Spontaneous
  Country: GB (occurrence: GB)
  Receive Date: 20190211
  Receipt Date: 20190211
  Transmission Date: 20190417
  Serious: Yes (Other)
  Sender: FDA-Public Use
  Company Number: GB-BAUSCH-BL-2019-003645

PATIENT
  Age: 63 Year
  Sex: Male

DRUGS (3)
  1. PREDNISOLONE. [Suspect]
     Active Substance: PREDNISOLONE
     Route: 048
     Dates: start: 2017, end: 2018
  2. PREDNISOLONE. [Suspect]
     Active Substance: PREDNISOLONE
     Indication: TEMPORAL ARTERITIS
     Route: 048
     Dates: start: 20170705, end: 2017
  3. PREDNISOLONE. [Suspect]
     Active Substance: PREDNISOLONE
     Dosage: REDUCED PREDNISOLONE DAILY DOSE BY 2.5 MG EVERY THREE WEEKS
     Route: 048
     Dates: start: 2017, end: 2017

REACTIONS (3)
  - Therapy cessation [Recovered/Resolved]
  - Neutrophil toxic granulation present [Unknown]
  - Product selection error [Recovered/Resolved]

NARRATIVE: CASE EVENT DATE: 2017
